FAERS Safety Report 15324378 (Version 2)
Quarter: 2018Q3

REPORT INFORMATION
  Report Type: Spontaneous
  Country: US (occurrence: US)
  Receive Date: 20180828
  Receipt Date: 20180828
  Transmission Date: 20181010
  Serious: No
  Sender: FDA-Public Use
  Company Number: US-BRISTOL-MYERS SQUIBB COMPANY-BMS-2018-072568

PATIENT
  Sex: Male
  Weight: 129 kg

DRUGS (1)
  1. YERVOY [Suspect]
     Active Substance: IPILIMUMAB
     Indication: METASTATIC MALIGNANT MELANOMA
     Dosage: 10MG/KG EVERY 21 DAYS X 4 DOSES AND THEN EVERY 3 MONTHS FOR MAINTENANCE DOSE
     Route: 042
     Dates: start: 20161216

REACTIONS (2)
  - Weight decreased [Unknown]
  - Overdose [Unknown]
